FAERS Safety Report 25543797 (Version 1)
Quarter: 2025Q3

REPORT INFORMATION
  Report Type: Other
  Country: US (occurrence: US)
  Receive Date: 20250711
  Receipt Date: 20250711
  Transmission Date: 20251020
  Serious: Yes (Hospitalization, Other)
  Sender: ANI
  Company Number: US-ANIPHARMA-023499

PATIENT
  Age: 32 Year
  Sex: Male

DRUGS (4)
  1. RISPERIDONE [Suspect]
     Active Substance: RISPERIDONE
     Indication: Intellectual disability
  2. CARIPRAZINE [Concomitant]
     Active Substance: CARIPRAZINE
     Indication: Intellectual disability
  3. CARIPRAZINE [Concomitant]
     Active Substance: CARIPRAZINE
     Indication: Autism spectrum disorder
  4. RISPERIDONE [Suspect]
     Active Substance: RISPERIDONE
     Indication: Autism spectrum disorder

REACTIONS (2)
  - Drug-disease interaction [Unknown]
  - Neuroleptic malignant syndrome [Recovered/Resolved]
